FAERS Safety Report 11183213 (Version 2)
Quarter: 2015Q2

REPORT INFORMATION
  Report Type: Spontaneous
  Country: US (occurrence: US)
  Receive Date: 20150611
  Receipt Date: 20150626
  Transmission Date: 20150821
  Serious: Yes (Hospitalization)
  Sender: FDA-Public Use
  Company Number: US-ACTELION-A-US2015-118591

PATIENT
  Age: 46 Year
  Sex: Female

DRUGS (5)
  1. REMODULIN [Concomitant]
     Active Substance: TREPROSTINIL
  2. TRACLEER [Suspect]
     Active Substance: BOSENTAN\BOSENTAN MONOHYDRATE
     Indication: PULMONARY ARTERIAL HYPERTENSION
     Dosage: UNK
     Route: 048
  3. COUMADIN [Concomitant]
     Active Substance: WARFARIN SODIUM
  4. LOVENOX [Concomitant]
     Active Substance: ENOXAPARIN SODIUM
  5. ADCIRCA [Concomitant]
     Active Substance: TADALAFIL

REACTIONS (5)
  - Device related infection [Unknown]
  - Loss of consciousness [Unknown]
  - Malaise [Unknown]
  - Staphylococcal infection [Unknown]
  - Vomiting [Unknown]

NARRATIVE: CASE EVENT DATE: 20150522
